FAERS Safety Report 4362598-1 (Version None)
Quarter: 2004Q2

REPORT INFORMATION
  Report Type: 
  Country: None (occurrence: None)
  Receive Date: 20040521
  Receipt Date: 20030715
  Transmission Date: 20050107
  Serious: Yes (Life-Threatening, Hospitalization, Disabling)
  Sender: FDA-Public Use
  Company Number: US-MERCK-0307USA01945

PATIENT
  Age: 61 Year
  Sex: Female

DRUGS (6)
  1. [THERAPY UNSPECIFIED] [Concomitant]
     Indication: BLOOD PRESSURE
     Route: 065
  2. ATENOLOL [Concomitant]
     Indication: BLOOD PRESSURE
     Route: 065
  3. PREVACID [Concomitant]
     Route: 065
  4. ACCUPRIL [Concomitant]
     Route: 065
  5. VIOXX [Suspect]
     Indication: KNEE ARTHROPLASTY
     Route: 048
     Dates: start: 20021114, end: 20021101
  6. VIOXX [Suspect]
     Indication: PAIN
     Route: 048
     Dates: start: 20021114, end: 20021101

REACTIONS (18)
  - ANAEMIA [None]
  - ARTERIOVENOUS FISTULA SITE COMPLICATION [None]
  - BLOOD AMYLASE INCREASED [None]
  - CARDIAC FAILURE CONGESTIVE [None]
  - CARDIOMEGALY [None]
  - DIALYSIS [None]
  - HAEMATURIA [None]
  - HYPERTENSION [None]
  - IRON DEFICIENCY ANAEMIA [None]
  - KNEE ARTHROPLASTY [None]
  - LIPASE INCREASED [None]
  - NAUSEA [None]
  - PULMONARY VASCULAR DISORDER [None]
  - RENAL FAILURE CHRONIC [None]
  - RENAL INJURY [None]
  - SCOLIOSIS [None]
  - STAPHYLOCOCCAL INFECTION [None]
  - VOMITING [None]
